FAERS Safety Report 12597066 (Version 1)
Quarter: 2016Q3

REPORT INFORMATION
  Report Type: Spontaneous
  Country: US (occurrence: None)
  Receive Date: 20160726
  Receipt Date: 20160726
  Transmission Date: 20161109
  Serious: Yes (Life-Threatening, Hospitalization, Disabling)
  Sender: FDA-Public Use
  Company Number: None

PATIENT
  Age: 35 Year
  Sex: Male
  Weight: 68.04 kg

DRUGS (2)
  1. LAMOTRIGINE. [Suspect]
     Active Substance: LAMOTRIGINE
     Indication: BIPOLAR II DISORDER
     Dosage: IN THE MORNING TAKEN BY MOUTH
     Route: 048
     Dates: start: 20150301, end: 20160722
  2. FINASTERIDE. [Concomitant]
     Active Substance: FINASTERIDE

REACTIONS (5)
  - Angioedema [None]
  - Rash [None]
  - Pharyngeal oedema [None]
  - Dysphagia [None]
  - Renal disorder [None]

NARRATIVE: CASE EVENT DATE: 20160711
